FAERS Safety Report 8843194 (Version 4)
Quarter: 2013Q3

REPORT INFORMATION
  Report Type: Report from Study
  Country: BR (occurrence: BR)
  Receive Date: 20121016
  Receipt Date: 20130906
  Transmission Date: 20140515
  Serious: Yes (Hospitalization, Disabling, Other)
  Sender: FDA-Public Use
  Company Number: BR-ROCHE-767554

PATIENT
  Age: 66 Year
  Sex: Female
  Weight: 80 kg

DRUGS (15)
  1. ACTEMRA [Suspect]
     Indication: RHEUMATOID ARTHRITIS
     Route: 042
  2. ACTEMRA [Suspect]
     Route: 042
     Dates: start: 201101, end: 201109
  3. ACTEMRA [Suspect]
     Route: 042
     Dates: start: 201203, end: 201208
  4. ACTEMRA [Suspect]
     Route: 042
  5. ACTEMRA [Suspect]
     Route: 042
  6. FLUOXETINE [Concomitant]
     Route: 065
  7. PROPRANOLOL [Concomitant]
  8. DIAZEPAM [Concomitant]
     Route: 065
  9. ANCORON [Concomitant]
  10. METICORTEN [Concomitant]
     Route: 065
  11. FOLIC ACID [Concomitant]
     Route: 065
  12. BROMAZEPAM [Concomitant]
     Route: 065
  13. ACETYLSALICYLIC ACID (ASA) [Concomitant]
  14. LEXAPRO [Concomitant]
     Route: 065
  15. SELOZOK [Concomitant]
     Route: 065

REACTIONS (16)
  - Foot fracture [Recovering/Resolving]
  - Femur fracture [Recovered/Resolved]
  - Osteomyelitis [Recovered/Resolved]
  - Bedridden [Recovered/Resolved]
  - Gait disturbance [Not Recovered/Not Resolved]
  - Arrhythmia [Recovering/Resolving]
  - Angina unstable [Recovering/Resolving]
  - Road traffic accident [Recovered/Resolved]
  - Localised infection [Recovered/Resolved]
  - Hypercholesterolaemia [Not Recovered/Not Resolved]
  - Immunosuppression [Unknown]
  - Urinary tract infection [Recovered/Resolved]
  - Local swelling [Not Recovered/Not Resolved]
  - Arthralgia [Not Recovered/Not Resolved]
  - Weight increased [Unknown]
  - Patient-device incompatibility [Not Recovered/Not Resolved]
